FAERS Safety Report 5765218-4 (Version None)
Quarter: 2008Q2

REPORT INFORMATION
  Report Type: 
  Country: None (occurrence: None)
  Receive Date: 20080605
  Receipt Date: 20080522
  Transmission Date: 20081010
  Serious: Yes (Other)
  Sender: FDA-Public Use
  Company Number: US-1166189

PATIENT
  Age: 78 Year
  Sex: Female

DRUGS (3)
  1. TRAVATAN Z [Suspect]
     Dosage: (OPHTHALMIC)
     Route: 047
  2. ALPHAGAN [Suspect]
     Dosage: (OPHTHALMIC)
     Route: 047
  3. TIMOLOL MALEATE [Concomitant]

REACTIONS (3)
  - BLOOD PRESSURE INCREASED [None]
  - INTRAOCULAR PRESSURE INCREASED [None]
  - OPTIC NERVE INJURY [None]
